FAERS Safety Report 18131723 (Version 1)
Quarter: 2020Q3

REPORT INFORMATION
  Report Type: Report from Study
  Country: CA (occurrence: CA)
  Receive Date: 20200810
  Receipt Date: 20200810
  Transmission Date: 20201103
  Serious: Yes (Other)
  Sender: FDA-Public Use
  Company Number: CA-ASTRAZENECA-2020SE95464

PATIENT
  Sex: Male

DRUGS (2)
  1. FCR (FLUDARABINE CYCLOPHOSPHAMIDE RITUXIMAB) [Concomitant]
  2. CALQUENCE [Suspect]
     Active Substance: ACALABRUTINIB
     Indication: CHRONIC LYMPHOCYTIC LEUKAEMIA
     Route: 048
     Dates: start: 20200712, end: 20200727

REACTIONS (3)
  - Mouth ulceration [Recovering/Resolving]
  - Speech disorder [Recovering/Resolving]
  - Feeding disorder [Recovering/Resolving]
